FAERS Safety Report 14807764 (Version 2)
Quarter: 2018Q2

REPORT INFORMATION
  Report Type: Report from Study
  Country: US (occurrence: US)
  Receive Date: 20180425
  Receipt Date: 20180517
  Transmission Date: 20180711
  Serious: Yes (Hospitalization)
  Sender: FDA-Public Use
  Company Number: US-ACTELION-A-NJ2018-168674

PATIENT
  Age: 52 Year
  Sex: Male
  Weight: 74.83 kg

DRUGS (6)
  1. EPOPROSTENOL TEVA [Concomitant]
  2. REMODULIN [Suspect]
     Active Substance: TREPROSTINIL
     Indication: PRODUCT USED FOR UNKNOWN INDICATION
     Dosage: 16 NG/KG, PER MIN
     Route: 065
  3. NIFEDIPINE. [Concomitant]
     Active Substance: NIFEDIPINE
  4. OPSUMIT [Suspect]
     Active Substance: MACITENTAN
     Indication: PULMONARY ARTERIAL HYPERTENSION
     Dosage: 10 MG, QD
     Route: 048
  5. ADCIRCA [Concomitant]
     Active Substance: TADALAFIL
  6. REMODULIN [Suspect]
     Active Substance: TREPROSTINIL
     Dosage: 12 NG/KG, PER MIN
     Route: 065

REACTIONS (13)
  - Pain in extremity [Unknown]
  - Application site erythema [Unknown]
  - Application site vesicles [Unknown]
  - Catheter site infection [Unknown]
  - Arthralgia [Unknown]
  - Dyspnoea exertional [Unknown]
  - Headache [Unknown]
  - Catheter site discharge [Unknown]
  - Catheter site rash [Unknown]
  - Application site pruritus [Unknown]
  - Pulmonary arterial hypertension [Unknown]
  - Oedema peripheral [Unknown]
  - Diarrhoea [Unknown]
